FAERS Safety Report 4397335-8 (Version None)
Quarter: 2004Q3

REPORT INFORMATION
  Report Type: 
  Country: None (occurrence: None)
  Receive Date: 20040714
  Receipt Date: 20040702
  Transmission Date: 20050211
  Serious: Yes (Death)
  Sender: FDA-Public Use
  Company Number: GR-GLAXOSMITHKLINE-B0338299A

PATIENT
  Age: 8 Year

DRUGS (3)
  1. AUGMENTIN '125' [Suspect]
     Indication: EAR INFECTION
     Route: 065
  2. ACETAMINOPHEN [Concomitant]
  3. DESLORATADINE [Concomitant]

REACTIONS (3)
  - CONJUNCTIVITIS [None]
  - DEATH [None]
  - PYREXIA [None]
